FAERS Safety Report 4888386-5 (Version None)
Quarter: 2006Q1

REPORT INFORMATION
  Report Type: 
  Country: None (occurrence: None)
  Receive Date: 20060118
  Receipt Date: 20060105
  Transmission Date: 20060701
  Serious: Yes (Hospitalization)
  Sender: FDA-Public Use
  Company Number: S06-FRA-00036-01

PATIENT
  Age: 26 Year
  Sex: Female

DRUGS (4)
  1. AOTAL (ACAMPROSATE) [Suspect]
     Indication: ALCOHOLISM
     Dosage: 333 MG QD PO
     Route: 048
     Dates: start: 20040708, end: 20040715
  2. VALIUM [Suspect]
     Indication: ALCOHOLISM
     Dosage: TABLET PO
     Route: 048
     Dates: start: 20040708, end: 20040715
  3. DIVARIUS (PAROXETINE) [Suspect]
     Dates: start: 20040708, end: 20040715
  4. MIZZOLEN (MIZOLASTINE) [Suspect]
     Dates: start: 20040708, end: 20040715

REACTIONS (5)
  - CAESAREAN SECTION [None]
  - DRUG EXPOSURE DURING PREGNANCY [None]
  - POLYHYDRAMNIOS [None]
  - PREMATURE LABOUR [None]
  - PREMATURE RUPTURE OF MEMBRANES [None]
